FAERS Safety Report 11145555 (Version 1)
Quarter: 2015Q2

REPORT INFORMATION
  Report Type: Spontaneous
  Country: US (occurrence: US)
  Receive Date: 20150526
  Receipt Date: 20150526
  Transmission Date: 20150821
  Serious: No
  Sender: FDA-Public Use
  Company Number: US-MALLINCKRODT-T201502253

PATIENT
  Sex: Female

DRUGS (1)
  1. H.P. ACTHAR [Suspect]
     Active Substance: CORTICOTROPIN
     Indication: SARCOIDOSIS
     Dosage: 40 UNITS / EVERY 72 HOURS
     Route: 058
     Dates: start: 20150331

REACTIONS (3)
  - Inappropriate schedule of drug administration [Unknown]
  - Injection site bruising [Unknown]
  - Drug ineffective [Unknown]
